FAERS Safety Report 15847706 (Version 4)
Quarter: 2019Q2

REPORT INFORMATION
  Report Type: Spontaneous
  Country: JP (occurrence: JP)
  Receive Date: 20190121
  Receipt Date: 20190604
  Transmission Date: 20190711
  Serious: Yes (Life-Threatening, Other)
  Sender: FDA-Public Use
  Company Number: JP-ASTELLAS-2019JP000714

PATIENT
  Age: 28 Year
  Sex: Female

DRUGS (3)
  1. PROGRAF [Suspect]
     Active Substance: TACROLIMUS\TACROLIMUS ANHYDROUS
     Indication: ILL-DEFINED DISORDER
     Dosage: UNK UNK, UNKNOWN FREQ.
     Route: 065
  2. PROGRAF [Suspect]
     Active Substance: TACROLIMUS\TACROLIMUS ANHYDROUS
     Indication: SYSTEMIC LUPUS ERYTHEMATOSUS
     Route: 048
     Dates: start: 20180525
  3. PROGRAF [Suspect]
     Active Substance: TACROLIMUS\TACROLIMUS ANHYDROUS
     Indication: ILL-DEFINED DISORDER
     Route: 048
     Dates: start: 20180514, end: 20180520

REACTIONS (8)
  - Proteinuria [Recovered/Resolved]
  - Intra-abdominal fluid collection [Recovered/Resolved]
  - Platelet count decreased [Not Recovered/Not Resolved]
  - Maternal exposure during pregnancy [Unknown]
  - Hypertension [Recovered/Resolved]
  - Pleural effusion [Recovered/Resolved]
  - Premature delivery [Unknown]
  - Palmar erythema [Not Recovered/Not Resolved]

NARRATIVE: CASE EVENT DATE: 201801
